FAERS Safety Report 16546947 (Version 1)
Quarter: 2019Q3

REPORT INFORMATION
  Report Type: Report from Study
  Country: IL (occurrence: IL)
  Receive Date: 20190709
  Receipt Date: 20190709
  Transmission Date: 20191004
  Serious: Yes (Hospitalization)
  Sender: FDA-Public Use
  Company Number: IL-IPSEN BIOPHARMACEUTICALS, INC.-2019-07191

PATIENT
  Sex: Female
  Weight: 64 kg

DRUGS (6)
  1. MIMPARA [Concomitant]
     Active Substance: CINACALCET HYDROCHLORIDE
     Route: 048
  2. MERCAPTIZOL [Concomitant]
     Active Substance: METHIMAZOLE
     Route: 048
  3. DOSTINEX [Concomitant]
     Active Substance: CABERGOLINE
     Route: 048
  4. TRIBEMIN [Concomitant]
     Active Substance: CYANOCOBALAMIN\PYRIDOXINE HYDROCHLORIDE\THIAMINE
     Route: 048
  5. GLUCOPHAGE RETARD [Concomitant]
     Route: 048
  6. SOMATULINE AUTOGEL 120MG [Suspect]
     Active Substance: LANREOTIDE ACETATE
     Indication: PANCREATIC NEUROENDOCRINE TUMOUR
     Route: 058
     Dates: start: 20160531

REACTIONS (3)
  - Nephrolithiasis [Unknown]
  - Hydronephrosis [Unknown]
  - Urinary tract infection [Recovered/Resolved]

NARRATIVE: CASE EVENT DATE: 2019
